FAERS Safety Report 9193595 (Version 2)
Quarter: 2013Q4

REPORT INFORMATION
  Report Type: Report from Study
  Country: BR (occurrence: BR)
  Receive Date: 20130327
  Receipt Date: 20131113
  Transmission Date: 20140711
  Serious: Yes (Death, Other)
  Sender: FDA-Public Use
  Company Number: BR-BAYER-2013-034242

PATIENT
  Age: 66 Year
  Sex: Male
  Weight: 45 kg

DRUGS (3)
  1. NEXAVAR [Suspect]
     Indication: RENAL CANCER
     Dosage: 2 DF, BID
     Route: 048
     Dates: start: 20130222, end: 20130628
  2. MORPHINE [Concomitant]
     Indication: ABDOMINAL DISCOMFORT
     Dosage: 4 DF, QD
     Route: 048
     Dates: start: 201306, end: 20130628
  3. MORPHINE [Concomitant]
     Indication: ABDOMINAL PAIN

REACTIONS (16)
  - Mastication disorder [Not Recovered/Not Resolved]
  - Malaise [Not Recovered/Not Resolved]
  - Anxiety [Not Recovered/Not Resolved]
  - Insomnia [Not Recovered/Not Resolved]
  - Pain [Not Recovered/Not Resolved]
  - Diarrhoea [Not Recovered/Not Resolved]
  - Nausea [Not Recovered/Not Resolved]
  - Mouth injury [Not Recovered/Not Resolved]
  - Vasodilatation [Not Recovered/Not Resolved]
  - Vascular pain [Not Recovered/Not Resolved]
  - Weight decreased [Not Recovered/Not Resolved]
  - Pain in extremity [Not Recovered/Not Resolved]
  - Local swelling [Not Recovered/Not Resolved]
  - Metastases to lung [Not Recovered/Not Resolved]
  - Renal cancer [Fatal]
  - Hepatic cancer [Fatal]
